FAERS Safety Report 10185034 (Version 2)
Quarter: 2014Q2

REPORT INFORMATION
  Report Type: Report from Study
  Country: JP (occurrence: JP)
  Receive Date: 20140521
  Receipt Date: 20140521
  Transmission Date: 20141212
  Serious: No
  Sender: FDA-Public Use
  Company Number: PHHY2012JP092951

PATIENT
  Age: 12 Year
  Sex: Male

DRUGS (15)
  1. ACZ885 [Suspect]
     Indication: CRYOPYRIN ASSOCIATED PERIODIC SYNDROME
     Dosage: 150 MG,
     Route: 058
     Dates: start: 20091117, end: 20091117
  2. ACZ885 [Suspect]
     Indication: CHRONIC INFANTILE NEUROLOGICAL CUTANEOUS AND ARTICULAR SYNDROME
     Dosage: 138 MG, UNK
     Route: 058
     Dates: start: 20120104, end: 20120104
  3. ACZ885 [Suspect]
     Dosage: 139.3 MG, UNK
     Route: 058
     Dates: start: 20120307, end: 20120307
  4. ACZ885 [Suspect]
     Dosage: 300 MG, UNK
     Route: 058
     Dates: start: 20120502, end: 20120502
  5. ACZ885 [Suspect]
     Dosage: 300 MG, UNK
     Route: 058
     Dates: start: 20120627, end: 20120627
  6. ACZ885 [Suspect]
     Dosage: 300 MG, UNK
     Route: 058
     Dates: start: 20120822, end: 20120822
  7. METHOTREXATE [Concomitant]
     Indication: CHRONIC INFANTILE NEUROLOGICAL CUTANEOUS AND ARTICULAR SYNDROME
     Dosage: 5 MG, UNK
     Route: 048
     Dates: start: 20091104
  8. ALFAROL [Concomitant]
     Indication: CHRONIC INFANTILE NEUROLOGICAL CUTANEOUS AND ARTICULAR SYNDROME
     Dosage: UNK UG, UNK
  9. DIAMOX [Concomitant]
     Dosage: 270 MG, UNK
  10. ASPARTATE POTASSIUM [Concomitant]
     Dosage: 270 MG, UNK
  11. ATROPINE [Concomitant]
     Dosage: 1 DF, UNK
     Route: 048
  12. RINDERON [Concomitant]
     Dosage: 1 DF, UNK
     Route: 048
     Dates: start: 20120828
  13. XALATAN [Concomitant]
     Dosage: 1 DF, UNK
     Route: 048
  14. COSOPT [Concomitant]
     Dosage: 1 DF, UNK
     Route: 048
  15. FLUMETHOLON [Concomitant]
     Dosage: 1 DF, UNK
     Route: 048
     Dates: start: 20120829

REACTIONS (4)
  - Pharyngitis [Recovering/Resolving]
  - Rhinitis [Recovering/Resolving]
  - Oral herpes [Recovering/Resolving]
  - Stomatitis [Recovering/Resolving]
